FAERS Safety Report 11523039 (Version 1)
Quarter: 2015Q3

REPORT INFORMATION
  Report Type: Spontaneous
  Country: US (occurrence: US)
  Receive Date: 20150918
  Receipt Date: 20150918
  Transmission Date: 20151125
  Serious: No
  Sender: FDA-Public Use
  Company Number: US-ROCHE-737188

PATIENT
  Age: 65 Year
  Sex: Male

DRUGS (2)
  1. PEGASYS [Suspect]
     Active Substance: PEGINTERFERON ALFA-2A
     Indication: HEPATITIS C
     Dosage: FORM: PRE-FILLED SYRINGE
     Route: 065
  2. RIBAVIRIN. [Suspect]
     Active Substance: RIBAVIRIN
     Indication: HEPATITIS C
     Dosage: DIVIDED DOSES
     Route: 065

REACTIONS (7)
  - Fatigue [Unknown]
  - Drug dose omission [Unknown]
  - Myalgia [Unknown]
  - Hyperhidrosis [Unknown]
  - Influenza like illness [Unknown]
  - Night sweats [Unknown]
  - Diarrhoea [Unknown]

NARRATIVE: CASE EVENT DATE: 20101018
